FAERS Safety Report 21932850 (Version 1)
Quarter: 2023Q1

REPORT INFORMATION
  Report Type: Spontaneous
  Country: US (occurrence: US)
  Receive Date: 20230131
  Receipt Date: 20230131
  Transmission Date: 20230417
  Serious: No
  Sender: FDA-Public Use
  Company Number: US-CLARUS THERAPEUTICS, INC.-2023-JATENZO-000080

PATIENT

DRUGS (2)
  1. JATENZO [Suspect]
     Active Substance: TESTOSTERONE UNDECANOATE
     Indication: Androgen deficiency
     Dosage: 237 MILLIGRAM, BID
     Route: 048
     Dates: start: 202202, end: 20221213
  2. JATENZO [Suspect]
     Active Substance: TESTOSTERONE UNDECANOATE
     Dosage: 237 MILLIGRAM, QD
     Route: 048
     Dates: start: 20221214, end: 20230103

REACTIONS (1)
  - Intentional underdose [Recovered/Resolved]

NARRATIVE: CASE EVENT DATE: 20221214
